FAERS Safety Report 18925309 (Version 1)
Quarter: 2021Q1

REPORT INFORMATION
  Report Type: Report from Study
  Country: US (occurrence: US)
  Receive Date: 20210222
  Receipt Date: 20210222
  Transmission Date: 20210420
  Serious: No
  Sender: FDA-Public Use
  Company Number: NVSC2021US034707

PATIENT
  Age: 76 Year
  Sex: Male

DRUGS (2)
  1. TASIGNA [Suspect]
     Active Substance: NILOTINIB
     Indication: FATIGUE
     Dosage: 150 MG, BID
     Route: 048
     Dates: start: 20210211
  2. TASIGNA [Suspect]
     Active Substance: NILOTINIB
     Indication: BLOOD GLUCOSE INCREASED

REACTIONS (3)
  - Product use in unapproved indication [Unknown]
  - Blood glucose increased [Unknown]
  - Fatigue [Unknown]

NARRATIVE: CASE EVENT DATE: 20210211
